FAERS Safety Report 5067796-X (Version None)
Quarter: 2006Q3

REPORT INFORMATION
  Report Type: 
  Country: None (occurrence: None)
  Receive Date: 20060802
  Receipt Date: 20060718
  Transmission Date: 20061208
  Serious: Yes (Hospitalization, Other)
  Sender: FDA-Public Use
  Company Number: JP-JPN-A200602026

PATIENT
  Age: 31 Year
  Sex: Female

DRUGS (10)
  1. PAXIL [Suspect]
     Indication: DEPRESSION
     Dosage: 30MG PER DAY
     Route: 048
  2. DEPAS [Concomitant]
     Indication: DEPRESSION
     Route: 048
  3. EVAMYL [Concomitant]
     Indication: DEPRESSION
     Route: 048
  4. INSULIN [Concomitant]
     Indication: GESTATIONAL DIABETES
     Route: 058
  5. INSULIN [Concomitant]
     Dosage: 14IU PER DAY
     Route: 058
  6. GENERAL ANAESTHESIA [Concomitant]
  7. RITODRINE [Concomitant]
     Dates: start: 20060508
  8. METRONIDAZOLE [Concomitant]
     Dates: start: 20060509
  9. ULINASTATIN [Concomitant]
     Dates: start: 20060515
  10. MAGNESIUM [Concomitant]
     Route: 042
     Dates: start: 20060528

REACTIONS (3)
  - DRUG EXPOSURE DURING PREGNANCY [None]
  - PREMATURE RUPTURE OF MEMBRANES [None]
  - THREATENED LABOUR [None]
